FAERS Safety Report 9498878 (Version 1)
Quarter: 2013Q3

REPORT INFORMATION
  Report Type: Spontaneous
  Country: IE (occurrence: IE)
  Receive Date: 20130904
  Receipt Date: 20130904
  Transmission Date: 20140515
  Serious: Yes (Other)
  Sender: FDA-Public Use
  Company Number: PHFR2013IE003145

PATIENT
  Age: 25 Year
  Sex: Male

DRUGS (3)
  1. CLOZARIL [Suspect]
     Indication: SCHIZOPHRENIA
     Dosage: 250 MG, UNK
     Route: 048
     Dates: start: 20130527
  2. OLANZAPINE [Concomitant]
     Dosage: 15 MG
     Route: 048
     Dates: start: 201303
  3. FLUOXETINE [Concomitant]
     Dosage: 170 MG, UNK
     Route: 048
     Dates: start: 201302

REACTIONS (2)
  - Body temperature decreased [Recovered/Resolved]
  - White blood cell count increased [Unknown]
